FAERS Safety Report 4754329-8 (Version None)
Quarter: 2005Q3

REPORT INFORMATION
  Report Type: 
  Country: None (occurrence: None)
  Receive Date: 20050825
  Receipt Date: 20050825
  Transmission Date: 20060218
  Serious: Yes (Life-Threatening)
  Sender: FDA-Public Use
  Company Number: None

PATIENT
  Sex: Female

DRUGS (4)
  1. ADDERALL XR 5 [Suspect]
     Indication: ANXIETY DISORDER
     Dosage: 5MG  BID  OTHER
     Dates: start: 20050531, end: 20050604
  2. ADDERALL XR 5 [Suspect]
     Indication: ATTENTION DEFICIT/HYPERACTIVITY DISORDER
     Dosage: 5MG  BID  OTHER
     Dates: start: 20050531, end: 20050604
  3. PAROXETINE [Concomitant]
  4. ATOMOXETINE [Concomitant]

REACTIONS (4)
  - ABNORMAL BEHAVIOUR [None]
  - DISCOMFORT [None]
  - IRRITABILITY [None]
  - SUICIDAL IDEATION [None]
